FAERS Safety Report 11214460 (Version 1)
Quarter: 2015Q2

REPORT INFORMATION
  Report Type: Report from Study
  Country: DE (occurrence: DE)
  Receive Date: 20150624
  Receipt Date: 20150624
  Transmission Date: 20150821
  Serious: Yes (Other)
  Sender: FDA-Public Use
  Company Number: DE-ROCHE-1598157

PATIENT
  Age: 54 Year
  Sex: Female
  Weight: 70 kg

DRUGS (4)
  1. PREDNISOLON [Concomitant]
     Active Substance: PREDNISOLONE
     Indication: RHEUMATOID ARTHRITIS
     Route: 048
  2. ROACTEMRA [Suspect]
     Active Substance: TOCILIZUMAB
     Route: 058
     Dates: end: 20150502
  3. ROACTEMRA [Suspect]
     Active Substance: TOCILIZUMAB
     Indication: RHEUMATOID ARTHRITIS
     Route: 058
     Dates: start: 20140703, end: 20150408
  4. TILIDINE [Concomitant]
     Active Substance: TILIDINE
     Dosage: DOSE IN MG.
     Route: 048
     Dates: start: 20150502, end: 20150503

REACTIONS (2)
  - Upper respiratory tract infection [Recovered/Resolved]
  - Bursitis [Recovered/Resolved]

NARRATIVE: CASE EVENT DATE: 20150408
